FAERS Safety Report 13143838 (Version 1)
Quarter: 2017Q1

REPORT INFORMATION
  Report Type: Report from Study
  Country: IT (occurrence: IT)
  Receive Date: 20170124
  Receipt Date: 20170124
  Transmission Date: 20170428
  Serious: Yes (Other)
  Sender: FDA-Public Use
  Company Number: IT-TEVA-731204ACC

PATIENT
  Age: 17 Year
  Sex: Female

DRUGS (3)
  1. OLANZAPINE. [Suspect]
     Active Substance: OLANZAPINE
     Indication: BIPOLAR DISORDER
     Dosage: 5 MILLIGRAM DAILY;
     Route: 048
     Dates: start: 20160101, end: 20161130
  2. CARBOLITHIUM - 150 MG CAPSULE RIGIDE  - TEVA ITALIA S.R.L. [Suspect]
     Active Substance: LITHIUM CARBONATE
     Indication: BIPOLAR DISORDER
     Dosage: 2 DOSAGE FORMS DAILY;
     Route: 048
     Dates: start: 20160101, end: 20161130
  3. XANAX [Suspect]
     Active Substance: ALPRAZOLAM
     Indication: ANXIETY
     Dosage: 1 DOSAGE FORMS DAILY;
     Route: 048
     Dates: start: 20160101, end: 20161130

REACTIONS (2)
  - Injury [Recovering/Resolving]
  - Syncope [Recovering/Resolving]

NARRATIVE: CASE EVENT DATE: 20161130
